FAERS Safety Report 17068291 (Version 1)
Quarter: 2019Q4

REPORT INFORMATION
  Report Type: Spontaneous
  Country: FR (occurrence: FR)
  Receive Date: 20191123
  Receipt Date: 20191123
  Transmission Date: 20200122
  Serious: Yes (Other)
  Sender: FDA-Public Use
  Company Number: FR-ACCORD-161257

PATIENT
  Age: 71 Year
  Sex: Male

DRUGS (1)
  1. ARIPIPRAZOLE. [Suspect]
     Active Substance: ARIPIPRAZOLE
     Indication: DELIRIUM
     Route: 048
     Dates: start: 20190807, end: 20190915

REACTIONS (5)
  - Insomnia [Recovered/Resolved]
  - Hypersexuality [Recovered/Resolved]
  - Fear of death [Recovered/Resolved]
  - Irritability [Recovered/Resolved]
  - Anxiety [Recovered/Resolved]

NARRATIVE: CASE EVENT DATE: 20190901
